FAERS Safety Report 17351687 (Version 1)
Quarter: 2020Q1

REPORT INFORMATION
  Report Type: Spontaneous
  Country: AT (occurrence: AT)
  Receive Date: 20200130
  Receipt Date: 20200130
  Transmission Date: 20200409
  Serious: Yes (Other)
  Sender: FDA-Public Use
  Company Number: AT-ALLERGAN-2003138US

PATIENT
  Sex: Female

DRUGS (4)
  1. ALPHAGAN P [Suspect]
     Active Substance: BRIMONIDINE TARTRATE
     Indication: INTRAOCULAR PRESSURE TEST
     Dosage: UNK
     Dates: start: 2000
  2. SAFLUTAN [Concomitant]
     Active Substance: TAFLUPROST
  3. COSOPT SINE [Concomitant]
  4. HYALO-CARE [Concomitant]

REACTIONS (8)
  - Dry eye [Not Recovered/Not Resolved]
  - Reaction to preservatives [Unknown]
  - Eye pain [Not Recovered/Not Resolved]
  - Injury corneal [Unknown]
  - Foreign body sensation in eyes [Not Recovered/Not Resolved]
  - Eye pruritus [Not Recovered/Not Resolved]
  - Eye irritation [Not Recovered/Not Resolved]
  - Lacrimation increased [Not Recovered/Not Resolved]

NARRATIVE: CASE EVENT DATE: 201904
